FAERS Safety Report 15256072 (Version 1)
Quarter: 2018Q3

REPORT INFORMATION
  Report Type: Spontaneous
  Country: US (occurrence: US)
  Receive Date: 20180718
  Receipt Date: 20180718
  Transmission Date: 20181010
  Serious: Yes (Other)
  Sender: FDA-Public Use
  Company Number: None

PATIENT
  Age: 71 Year
  Sex: Female
  Weight: 82.1 kg

DRUGS (7)
  1. YESCARTA [Suspect]
     Active Substance: AXICABTAGENE CILOLEUCEL
     Indication: DIFFUSE LARGE B-CELL LYMPHOMA
     Route: 041
     Dates: start: 20180410, end: 20180410
  2. ENOXAPARIN [Concomitant]
     Active Substance: ENOXAPARIN
  3. PROCHLORPERAZINE. [Concomitant]
     Active Substance: PROCHLORPERAZINE
  4. ONDANSETRON [Concomitant]
     Active Substance: ONDANSETRON
  5. ACYCLOVIR. [Concomitant]
     Active Substance: ACYCLOVIR
  6. ALLOPURINOL. [Concomitant]
     Active Substance: ALLOPURINOL
  7. OLANZAPINE. [Concomitant]
     Active Substance: OLANZAPINE

REACTIONS (5)
  - Encephalopathy [None]
  - Aphasia [None]
  - Device related sepsis [None]
  - Neurotoxicity [None]
  - Disturbance in attention [None]

NARRATIVE: CASE EVENT DATE: 20180410
